FAERS Safety Report 9568483 (Version 1)
Quarter: 2013Q3

REPORT INFORMATION
  Report Type: Spontaneous
  Country: US (occurrence: US)
  Receive Date: 20130930
  Receipt Date: 20130930
  Transmission Date: 20140515
  Serious: No
  Sender: FDA-Public Use
  Company Number: US-AMGEN-USASP2013057737

PATIENT
  Age: 40 Year
  Sex: Female

DRUGS (1)
  1. ENBREL [Suspect]
     Indication: RHEUMATOID ARTHRITIS
     Dosage: 50 MG, QWK
     Route: 065
     Dates: start: 20130717

REACTIONS (10)
  - Erythema [Recovered/Resolved]
  - Swelling [Recovered/Resolved]
  - Feeling hot [Recovered/Resolved]
  - Pruritus [Recovered/Resolved]
  - Contusion [Recovered/Resolved]
  - Injection site rash [Recovered/Resolved]
  - Injection site pain [Recovered/Resolved]
  - Injection site urticaria [Not Recovered/Not Resolved]
  - Injection site erythema [Not Recovered/Not Resolved]
  - Injection site pruritus [Not Recovered/Not Resolved]
